FAERS Safety Report 7456062-0 (Version None)
Quarter: 2011Q2

REPORT INFORMATION
  Report Type: 
  Country: None (occurrence: None)
  Receive Date: 20110503
  Receipt Date: 20110429
  Transmission Date: 20111010
  Serious: No
  Sender: FDA-Public Use
  Company Number: US-PFIZER INC-2011093159

PATIENT
  Sex: Female
  Weight: 68 kg

DRUGS (2)
  1. ZYRTEC-D 12 HOUR [Suspect]
     Indication: HYPERSENSITIVITY
     Dosage: 1 MG, AS NEEDED
     Route: 048
     Dates: start: 20040101
  2. PRISTIQ [Suspect]
     Indication: PERSONALITY DISORDER
     Dosage: 50 MG, 1X/DAY
     Route: 048
     Dates: start: 20110426

REACTIONS (4)
  - HAEMATOLOGY TEST ABNORMAL [None]
  - WRONG TECHNIQUE IN DRUG USAGE PROCESS [None]
  - WHITE BLOOD CELL COUNT INCREASED [None]
  - MEDICATION RESIDUE [None]
